FAERS Safety Report 25795106 (Version 3)
Quarter: 2025Q3

REPORT INFORMATION
  Report Type: Spontaneous
  Country: CA (occurrence: CA)
  Receive Date: 20250912
  Receipt Date: 20250927
  Transmission Date: 20251021
  Serious: Yes (Other)
  Sender: CELLTRION
  Company Number: CA-CELLTRION INC.-2025CA032275

PATIENT

DRUGS (26)
  1. TRUXIMA [Suspect]
     Active Substance: RITUXIMAB-ABBS
     Indication: Rheumatoid arthritis
     Route: 042
     Dates: start: 20250819
  2. METOCLOPRAMIDE [Concomitant]
     Active Substance: METOCLOPRAMIDE
  3. PIRFENIDONE [Concomitant]
     Active Substance: PIRFENIDONE
  4. APIXABAN [Concomitant]
     Active Substance: APIXABAN
  5. BISOPROLOL TEVA [Concomitant]
  6. BISOPROLOL [Concomitant]
     Active Substance: BISOPROLOL
  7. JARDIANCE [Concomitant]
     Active Substance: EMPAGLIFLOZIN
  8. EMPAGLIFLOZIN [Concomitant]
     Active Substance: EMPAGLIFLOZIN
  9. CALCIUM [Concomitant]
     Active Substance: CALCIUM
  10. MAGNESIUM [Concomitant]
     Active Substance: MAGNESIUM
  11. VITAMIN D NOS [Concomitant]
     Active Substance: CHOLECALCIFEROL\ERGOCALCIFEROL
  12. DULOXETINE [Concomitant]
     Active Substance: DULOXETINE
  13. JAMP FAMOTIDINE [Concomitant]
  14. AMLODIPINE [Concomitant]
     Active Substance: AMLODIPINE BESYLATE
  15. FERAMAX [Concomitant]
     Active Substance: IRON\POLYSACCHARIDES
  16. IRON [Concomitant]
     Active Substance: IRON
  17. PRAMIPEXOLE DIHYDROCHLORIDE [Concomitant]
     Active Substance: PRAMIPEXOLE DIHYDROCHLORIDE
  18. ATORVASTATIN [Concomitant]
     Active Substance: ATORVASTATIN
  19. METFORMIN HYDROCHLORIDE [Concomitant]
     Active Substance: METFORMIN HYDROCHLORIDE
  20. SYNTHROID [Concomitant]
     Active Substance: LEVOTHYROXINE SODIUM
  21. PANTOPRAZOLE SODIUM [Concomitant]
     Active Substance: PANTOPRAZOLE SODIUM
  22. SULFATRIM [Concomitant]
     Active Substance: SULFAMETHOXAZOLE\TRIMETHOPRIM
  23. GABAPENTIN [Concomitant]
     Active Substance: GABAPENTIN
  24. ACETYLCYSTEINE [Concomitant]
     Active Substance: ACETYLCYSTEINE
  25. CETIRIZINE [Concomitant]
     Active Substance: CETIRIZINE HYDROCHLORIDE
     Indication: Premedication
     Route: 048
  26. METHYLPREDNISOLONE [Concomitant]
     Active Substance: METHYLPREDNISOLONE
     Indication: Premedication
     Route: 042

REACTIONS (4)
  - Hallucination, visual [Recovered/Resolved]
  - Sepsis [Unknown]
  - Urinary tract infection [Unknown]
  - Intentional dose omission [Unknown]

NARRATIVE: CASE EVENT DATE: 20250903
